FAERS Safety Report 8302739-4 (Version None)
Quarter: 2012Q2

REPORT INFORMATION
  Report Type: 
  Country: None (occurrence: None)
  Receive Date: 20120420
  Receipt Date: 20120416
  Transmission Date: 20120825
  Serious: Yes (Death, Life-Threatening, Hospitalization, Other)
  Sender: FDA-Public Use
  Company Number: US-ELI_LILLY_AND_COMPANY-US201201006778

PATIENT
  Sex: Male

DRUGS (15)
  1. LIPRAM [Concomitant]
     Dosage: 2 DF, TID
     Route: 048
  2. LORTAB [Concomitant]
  3. LEVOXYL [Concomitant]
     Dosage: 50 MG, QD
     Route: 048
  4. LASIX [Concomitant]
  5. JANUMET [Concomitant]
     Dosage: 1 UNK, UNK
  6. DIOVAN [Concomitant]
     Dosage: UNK, QD
     Route: 048
  7. METFORMIN HCL [Concomitant]
     Dosage: 1000 MG, QD
  8. IBUPROFEN [Concomitant]
     Dosage: 800 MG, PRN
     Route: 048
  9. ZOFRAN [Concomitant]
  10. PROTONIX [Concomitant]
     Dosage: 40 MG, QD
  11. SIMVASTATIN [Concomitant]
     Dosage: 20 MG, QD
     Route: 048
  12. ASPIRIN [Concomitant]
     Dosage: 650 MG, QD
     Route: 048
  13. HYDROCHLOROTHIAZIDE [Concomitant]
     Dosage: 25 MG, QD
     Route: 048
  14. BYETTA [Suspect]
     Dosage: 5 UG, BID
     Route: 058
     Dates: end: 20111201
  15. CLARITIN [Concomitant]
     Dosage: 10 MG, PRN
     Route: 048

REACTIONS (7)
  - HYPOXIC-ISCHAEMIC ENCEPHALOPATHY [None]
  - RENAL FAILURE [None]
  - RESPIRATORY FAILURE [None]
  - SEPSIS [None]
  - RENAL FAILURE ACUTE [None]
  - CARDIAC ARREST [None]
  - MYOCARDIAL INFARCTION [None]
